FAERS Safety Report 5261043-1 (Version None)
Quarter: 2007Q1

REPORT INFORMATION
  Report Type: 
  Country: None (occurrence: None)
  Receive Date: 20070309
  Receipt Date: 20070227
  Transmission Date: 20070707
  Serious: Yes (Other)
  Sender: FDA-Public Use
  Company Number: AR-PFIZER INC-2007015986

PATIENT
  Sex: Female
  Weight: 72 kg

DRUGS (3)
  1. AMLOC [Suspect]
     Indication: HYPERTENSION
  2. ATENOLOL [Concomitant]
     Route: 048
  3. MODURETIC 5-50 [Concomitant]

REACTIONS (2)
  - BREAST HAEMORRHAGE [None]
  - GALACTORRHOEA [None]
